FAERS Safety Report 17300944 (Version 6)
Quarter: 2020Q3

REPORT INFORMATION
  Report Type: Spontaneous
  Country: US (occurrence: US)
  Receive Date: 20200122
  Receipt Date: 20200728
  Transmission Date: 20201102
  Serious: Yes (Other)
  Sender: FDA-Public Use
  Company Number: US-PFIZER INC-2020027782

PATIENT
  Age: 52 Year
  Sex: Female

DRUGS (1)
  1. XELJANZ XR [Suspect]
     Active Substance: TOFACITINIB CITRATE
     Dosage: 11 MG, UNK
     Dates: start: 201912

REACTIONS (20)
  - Sensitivity to weather change [Unknown]
  - Skin disorder [Unknown]
  - Fatigue [Not Recovered/Not Resolved]
  - Condition aggravated [Unknown]
  - Headache [Not Recovered/Not Resolved]
  - Sleep terror [Unknown]
  - Nausea [Unknown]
  - Hypersensitivity [Not Recovered/Not Resolved]
  - Dry mouth [Unknown]
  - Oropharyngeal pain [Unknown]
  - Post-traumatic stress disorder [Unknown]
  - Dizziness [Unknown]
  - Pollakiuria [Unknown]
  - Pain [Unknown]
  - Arthralgia [Unknown]
  - Respiratory tract congestion [Unknown]
  - Sleep disorder [Unknown]
  - Rhinitis allergic [Unknown]
  - Movement disorder [Unknown]
  - Malaise [Unknown]
